FAERS Safety Report 5405379-X (Version None)
Quarter: 2007Q3

REPORT INFORMATION
  Report Type: 
  Country: None (occurrence: None)
  Receive Date: 20070803
  Receipt Date: 20070731
  Transmission Date: 20080115
  Serious: Yes (Hospitalization, Other)
  Sender: FDA-Public Use
  Company Number: AT-PFIZER INC-2006066883

PATIENT
  Age: 55 Year
  Sex: Female

DRUGS (3)
  1. ZELDOX (CAPSULES) [Suspect]
     Indication: SCHIZOPHRENIA, PARANOID TYPE
     Dosage: DAILY DOSE:140MG
     Route: 048
     Dates: start: 20060308, end: 20060315
  2. HALDOL [Suspect]
     Indication: SCHIZOPHRENIA, PARANOID TYPE
     Dosage: DAILY DOSE:20MG-FREQ:DAILY:EVERY DAY
     Route: 042
     Dates: start: 20060224, end: 20060305
  3. HALDOL [Suspect]
     Dosage: DAILY DOSE:10MG-FREQ:DAILY:EVERY DAY
     Route: 048
     Dates: start: 20060306, end: 20060309

REACTIONS (3)
  - DYSKINESIA [None]
  - GLOSSOPHARYNGEAL NERVE DISORDER [None]
  - PARKINSONISM [None]
